FAERS Safety Report 24284424 (Version 1)
Quarter: 2024Q3

REPORT INFORMATION
  Report Type: Spontaneous
  Country: US (occurrence: US)
  Receive Date: 20240905
  Receipt Date: 20240905
  Transmission Date: 20241017
  Serious: Yes (Other)
  Sender: ALKEM
  Company Number: US-ALKEM LABORATORIES LIMITED-US-ALKEM-2024-14100

PATIENT

DRUGS (2)
  1. VANCOMYCIN [Suspect]
     Active Substance: VANCOMYCIN
     Indication: Antibiotic therapy
     Dosage: 15 MILLIGRAM/KILOGRAM, QD (EVERY 24 HOURS)
     Route: 065
  2. VANCOMYCIN [Suspect]
     Active Substance: VANCOMYCIN
     Dosage: 20 MILLIGRAM/KILOGRAM, QD (EVERY 24 HOURS)
     Route: 065

REACTIONS (2)
  - Acute kidney injury [Unknown]
  - Drug level increased [Unknown]
